FAERS Safety Report 12837398 (Version 1)
Quarter: 2016Q4

REPORT INFORMATION
  Report Type: Report from Study
  Country: CA (occurrence: CA)
  Receive Date: 20161011
  Receipt Date: 20161011
  Transmission Date: 20170207
  Serious: Yes (Death)
  Sender: FDA-Public Use
  Company Number: CA-ASTRAZENECA-2016SF06117

PATIENT
  Age: 86 Year
  Sex: Male

DRUGS (7)
  1. ZOLADEX LA [Suspect]
     Active Substance: GOSERELIN ACETATE
     Indication: PROSTATE CANCER
     Route: 058
     Dates: start: 20121113
  2. ELOCOM [Concomitant]
     Active Substance: MOMETASONE FUROATE
     Dosage: 1-2 TIMES DAILY
  3. HAMAMELIS [Concomitant]
     Active Substance: HAMAMELIS VIRGINIANA LEAF
  4. PANECTYL [Concomitant]
     Dosage: 0.5DF AS REQUIRED
  5. CLOPIDOGREL [Concomitant]
     Active Substance: CLOPIDOGREL BISULFATE
  6. ASPIRIN. [Concomitant]
     Active Substance: ASPIRIN
  7. NITROGLYCERIN. [Concomitant]
     Active Substance: NITROGLYCERIN
     Dosage: 1.6MG UNKNOWN

REACTIONS (1)
  - Death [Fatal]
